FAERS Safety Report 4352151-8 (Version None)
Quarter: 2004Q2

REPORT INFORMATION
  Report Type: 
  Country: None (occurrence: None)
  Receive Date: 20040429
  Receipt Date: 20040429
  Transmission Date: 20050107
  Serious: Yes (Life-Threatening, Hospitalization)
  Sender: FDA-Public Use
  Company Number: None

PATIENT
  Sex: Male
  Weight: 11.9 kg

DRUGS (17)
  1. CYTARABINE [Suspect]
     Indication: ACUTE LYMPHOCYTIC LEUKAEMIA
     Dosage: 1500 MG OVER 3 HRS Q 12 HRS C 6 IV
     Route: 042
     Dates: start: 20040410
  2. CYTARABINE [Suspect]
     Indication: ACUTE MYELOID LEUKAEMIA
     Dosage: 1500 MG OVER 3 HRS Q 12 HRS C 6 IV
     Route: 042
     Dates: start: 20040410
  3. CYTARABINE [Suspect]
     Indication: ACUTE LYMPHOCYTIC LEUKAEMIA
     Dosage: 1500 MG OVER 3 HRS Q 12 HRS C 6 IV
     Route: 042
     Dates: start: 20040412
  4. CYTARABINE [Suspect]
     Indication: ACUTE MYELOID LEUKAEMIA
     Dosage: 1500 MG OVER 3 HRS Q 12 HRS C 6 IV
     Route: 042
     Dates: start: 20040412
  5. CYTARABINE [Suspect]
     Indication: ACUTE LYMPHOCYTIC LEUKAEMIA
     Dosage: 1500 MG OVER 3 HRS Q 12 HRS C 6 IV
     Route: 042
     Dates: start: 20040414
  6. CYTARABINE [Suspect]
     Indication: ACUTE MYELOID LEUKAEMIA
     Dosage: 1500 MG OVER 3 HRS Q 12 HRS C 6 IV
     Route: 042
     Dates: start: 20040414
  7. DAUNOMYCIN [Suspect]
     Indication: ACUTE LYMPHOCYTIC LEUKAEMIA
     Dosage: 25 MG OVER 6 HRS ON DAY 2,4,6 IV
     Route: 042
     Dates: start: 20040411
  8. DAUNOMYCIN [Suspect]
     Indication: ACUTE MYELOID LEUKAEMIA
     Dosage: 25 MG OVER 6 HRS ON DAY 2,4,6 IV
     Route: 042
     Dates: start: 20040411
  9. DAUNOMYCIN [Suspect]
     Indication: ACUTE LYMPHOCYTIC LEUKAEMIA
     Dosage: 25 MG OVER 6 HRS ON DAY 2,4,6 IV
     Route: 042
     Dates: start: 20040413
  10. DAUNOMYCIN [Suspect]
     Indication: ACUTE MYELOID LEUKAEMIA
     Dosage: 25 MG OVER 6 HRS ON DAY 2,4,6 IV
     Route: 042
     Dates: start: 20040413
  11. DAUNOMYCIN [Suspect]
     Indication: ACUTE LYMPHOCYTIC LEUKAEMIA
     Dosage: 25 MG OVER 6 HRS ON DAY 2,4,6 IV
     Route: 042
     Dates: start: 20040415
  12. DAUNOMYCIN [Suspect]
     Indication: ACUTE MYELOID LEUKAEMIA
     Dosage: 25 MG OVER 6 HRS ON DAY 2,4,6 IV
     Route: 042
     Dates: start: 20040415
  13. ETOPOSIDE [Suspect]
     Indication: ACUTE LYMPHOCYTIC LEUKAEMIA
     Dosage: 50MG OVER 40 ON DAY 2-6 IV
     Route: 042
     Dates: start: 20040411, end: 20040415
  14. ETOPOSIDE [Suspect]
     Indication: ACUTE MYELOID LEUKAEMIA
     Dosage: 50MG OVER 40 ON DAY 2-6 IV
     Route: 042
     Dates: start: 20040411, end: 20040415
  15. BACTRIM [Concomitant]
  16. VORICONAZOLE [Concomitant]
  17. PERIDEX/MIKES MAGIC [Concomitant]

REACTIONS (11)
  - BLOOD ALBUMIN DECREASED [None]
  - BLOOD CALCIUM DECREASED [None]
  - BLOOD POTASSIUM DECREASED [None]
  - BLOOD SODIUM DECREASED [None]
  - FREQUENT BOWEL MOVEMENTS [None]
  - GASTROINTESTINAL MUCOSITIS [None]
  - LOOSE STOOLS [None]
  - NEUTROPENIA [None]
  - PYREXIA [None]
  - STOOLS WATERY [None]
  - VOMITING [None]
